FAERS Safety Report 26005472 (Version 1)
Quarter: 2025Q4

REPORT INFORMATION
  Report Type: Spontaneous
  Country: EU (occurrence: None)
  Receive Date: 20251106
  Receipt Date: 20251106
  Transmission Date: 20260118
  Serious: Yes (Other)
  Sender: ORION
  Company Number: None

PATIENT
  Age: 36 Year
  Sex: Male

DRUGS (2)
  1. METHOTREXATE [Suspect]
     Active Substance: METHOTREXATE
     Indication: SAPHO syndrome
     Dosage: 1 TOTAL
     Dates: start: 20250930, end: 20250930
  2. METHOTREXATE [Suspect]
     Active Substance: METHOTREXATE
     Dosage: 1 TOTAL
     Dates: start: 20251007, end: 20251007

REACTIONS (3)
  - Oedema peripheral [Recovered/Resolved]
  - Oedema genital [Recovered/Resolved]
  - Product use in unapproved indication [Unknown]

NARRATIVE: CASE EVENT DATE: 20250930
